FAERS Safety Report 10621725 (Version 1)
Quarter: 2014Q4

REPORT INFORMATION
  Report Type: Spontaneous
  Country: US (occurrence: None)
  Receive Date: 20141201
  Receipt Date: 20141201
  Transmission Date: 20150529
  Serious: No
  Sender: FDA-Public Use
  Company Number: None

PATIENT
  Age: 33 Year
  Sex: Female
  Weight: 65.77 kg

DRUGS (1)
  1. MONTELUKAST SOD [Suspect]
     Active Substance: MONTELUKAST SODIUM
     Indication: MULTIPLE ALLERGIES
     Dosage: 1 PILL
     Route: 048
     Dates: start: 20140908, end: 20141010

REACTIONS (5)
  - Arthralgia [None]
  - Pain in extremity [None]
  - Tendon pain [None]
  - Limb discomfort [None]
  - Back pain [None]

NARRATIVE: CASE EVENT DATE: 20141009
